FAERS Safety Report 7725622-1 (Version None)
Quarter: 2011Q3

REPORT INFORMATION
  Report Type: 
  Country: None (occurrence: None)
  Receive Date: 20110830
  Receipt Date: 20110824
  Transmission Date: 20111222
  Serious: Yes (Hospitalization)
  Sender: FDA-Public Use
  Company Number: AVE_02142_2011

PATIENT
  Age: 44 Year
  Sex: Female

DRUGS (4)
  1. SIMVASTATIN [Concomitant]
  2. HYDROCHLOROTHIAZIDE [Concomitant]
  3. METOPROLOL TARTRATE [Concomitant]
  4. CLONIDINE [Suspect]
     Indication: HYPERTENSION
     Dosage: (0.3 MG QD, VIA 1/WEEKLY PATCH TRANSDERMAL)
     Route: 062

REACTIONS (9)
  - CORONARY ARTERY DISSECTION [None]
  - ARTERIOSPASM CORONARY [None]
  - FATIGUE [None]
  - OVERDOSE [None]
  - CORONARY ARTERY OCCLUSION [None]
  - VOMITING [None]
  - CORONARY ARTERY STENOSIS [None]
  - CHEST DISCOMFORT [None]
  - DIZZINESS [None]
